FAERS Safety Report 9634127 (Version 1)
Quarter: 2013Q4

REPORT INFORMATION
  Report Type: Spontaneous
  Country: ZA (occurrence: ZA)
  Receive Date: 20131021
  Receipt Date: 20131021
  Transmission Date: 20140711
  Serious: Yes (Life-Threatening)
  Sender: FDA-Public Use
  Company Number: ZA-ASTRAZENECA-2013SE76686

PATIENT
  Age: 61 Year
  Sex: Female

DRUGS (6)
  1. PROPOFOL [Suspect]
     Indication: INDUCTION OF ANAESTHESIA
     Route: 042
  2. FENTANYL [Suspect]
     Indication: INDUCTION OF ANAESTHESIA
  3. VECURONIUM [Concomitant]
     Indication: INDUCTION OF ANAESTHESIA
  4. SEVOFLURANE [Concomitant]
     Indication: MAINTENANCE OF ANAESTHESIA
  5. OXYGEN [Concomitant]
     Indication: MAINTENANCE OF ANAESTHESIA
  6. BUPIVACAINE [Concomitant]
     Dosage: 70 MG OF PLAIN BUPIVACAINE IN A VOLUME OF 20 ML
     Route: 053

REACTIONS (1)
  - Arteriospasm coronary [Recovered/Resolved]
